FAERS Safety Report 11707658 (Version 1)
Quarter: 2015Q4

REPORT INFORMATION
  Report Type: Report from Study
  Country: JP (occurrence: JP)
  Receive Date: 20151106
  Receipt Date: 20151106
  Transmission Date: 20160304
  Serious: Yes (Death, Hospitalization)
  Sender: FDA-Public Use
  Company Number: JP-B.I. PHARMACEUTICALS,INC./RIDGEFIELD-2015-BI-27131NB

PATIENT
  Age: 53 Year
  Sex: Female
  Weight: 45.5 kg

DRUGS (1)
  1. GILOTRIF [Suspect]
     Active Substance: AFATINIB
     Indication: LUNG ADENOCARCINOMA
     Dosage: 40 MG
     Route: 065
     Dates: start: 20140825, end: 20150501

REACTIONS (3)
  - Rash [Not Recovered/Not Resolved]
  - Paronychia [Not Recovered/Not Resolved]
  - Interstitial lung disease [Fatal]

NARRATIVE: CASE EVENT DATE: 20140922
